FAERS Safety Report 8882452 (Version 2)
Quarter: 2015Q2

REPORT INFORMATION
  Report Type: Report from Study
  Country: US (occurrence: US)
  Receive Date: 20121103
  Receipt Date: 20150521
  Transmission Date: 20150821
  Serious: Yes (Hospitalization, Other)
  Sender: FDA-Public Use
  Company Number: US-009507513-2012SP024559

PATIENT
  Age: 52 Year
  Sex: Female
  Weight: 81.65 kg

DRUGS (22)
  1. SINGULAIR [Concomitant]
     Active Substance: MONTELUKAST SODIUM
     Indication: ASTHMA
     Dosage: 10 MG, QD
     Route: 048
     Dates: start: 1990
  2. FLUNISOLIDE. [Concomitant]
     Active Substance: FLUNISOLIDE
     Indication: ASTHMA
     Dosage: 4 DF PRN
     Dates: start: 2000
  3. THYRAX [Concomitant]
     Active Substance: LEVOTHYROXINE
     Indication: HYPOTHYROIDISM
     Dosage: UPDATE (04JUN2012)
     Dates: start: 1984, end: 20120406
  4. AZITHROMYCIN [Concomitant]
     Active Substance: AZITHROMYCIN ANHYDROUS
     Dosage: 250 MG, PRN
     Dates: start: 20100925
  5. ABT-888 [Suspect]
     Active Substance: VELIPARIB
     Indication: OVARIAN CANCER
     Dosage: DAYS 1 THROUGH 7 OF EACH 28 DAY CYCLE (40MG, 2 IN DAY)
     Route: 048
     Dates: start: 20100401, end: 20110914
  6. ALBUTEROL. [Concomitant]
     Active Substance: ALBUTEROL
     Indication: ASTHMA
     Dosage: 2 DF PRN
     Dates: start: 1980
  7. MAGNESIUM OXIDE. [Concomitant]
     Active Substance: MAGNESIUM OXIDE
     Indication: HYPOMAGNESAEMIA
     Dosage: 250 MG, PRN
     Dates: start: 20100824, end: 20120406
  8. ZOCOR [Concomitant]
     Active Substance: SIMVASTATIN
     Indication: HYPERCHOLESTEROLAEMIA
     Dosage: 20 MG, QD
     Route: 048
     Dates: start: 2009
  9. ECOTRIN [Concomitant]
     Active Substance: ASPIRIN
     Indication: CARDIOVASCULAR EVENT PROPHYLAXIS
     Dosage: 81 MG, QD
     Dates: start: 20100712
  10. TYLENOL [Concomitant]
     Active Substance: ACETAMINOPHEN
     Indication: PAIN PROPHYLAXIS
     Dosage: 500 MG, PRN
     Route: 048
     Dates: start: 20120406, end: 20120412
  11. THYRAX [Concomitant]
     Active Substance: LEVOTHYROXINE
     Dosage: 112 MICROGRAM, QD
     Dates: start: 20120407, end: 20120424
  12. POTASSIUM (UNSPECIFIED) [Concomitant]
     Active Substance: POTASSIUM
     Indication: HYPOKALAEMIA
     Dosage: 8 MEQ, QD
     Dates: start: 2009
  13. GUAIFENESIN. [Concomitant]
     Active Substance: GUAIFENESIN
     Indication: COUGH
     Dosage: 1 DF, PRN
     Dates: start: 20100924
  14. TEMODAR [Suspect]
     Active Substance: TEMOZOLOMIDE
     Indication: OVARIAN CANCER
     Dosage: 1 DAYS THROUGH 5 OF EACH 28 DAY CYCLE
     Route: 042
     Dates: start: 20100430, end: 20110818
  15. THYRAX [Concomitant]
     Active Substance: LEVOTHYROXINE
     Dosage: 56 MICROGRAM, QD
     Dates: start: 20120425
  16. IBUPROFEN. [Concomitant]
     Active Substance: IBUPROFEN
     Dosage: 800 MG, PRN
     Dates: start: 20120924
  17. MINERALS (UNSPECIFIED) (+) VITAMINS (UNSPECIFIED) [Concomitant]
     Indication: NUTRITIONAL SUPPLEMENTATION
     Dosage: 1 DF, QD
     Dates: start: 2009
  18. TEMODAR [Suspect]
     Active Substance: TEMOZOLOMIDE
     Indication: OVARIAN CANCER
     Dosage: DAYS 1 THROUGH 5 OF EACH 28 DAY CYCLE
     Route: 048
     Dates: start: 20100401, end: 20100410
  19. IBUPROFEN. [Concomitant]
     Active Substance: IBUPROFEN
     Indication: MIGRAINE
     Dosage: 400 MG, PRN
     Dates: start: 2000
  20. IBUPROFEN. [Concomitant]
     Active Substance: IBUPROFEN
     Dosage: 200 MG, PRN
     Dates: start: 20100622, end: 20100924
  21. AZITHROMYCIN [Concomitant]
     Active Substance: AZITHROMYCIN ANHYDROUS
     Indication: BRONCHIECTASIS
     Dosage: 1 IN 30 DAY
     Dates: start: 20100924
  22. MOMETASONE FUROATE. [Concomitant]
     Active Substance: MOMETASONE FUROATE
     Indication: ASTHMA
     Dosage: 2 PUFF ONCE A DAY
     Dates: start: 20100809

REACTIONS (2)
  - Acute myeloid leukaemia [Unknown]
  - Ovarian cancer [Unknown]

NARRATIVE: CASE EVENT DATE: 20120409
